FAERS Safety Report 6760683-8 (Version None)
Quarter: 2010Q2

REPORT INFORMATION
  Report Type: 
  Country: None (occurrence: None)
  Receive Date: 20100608
  Receipt Date: 20100526
  Transmission Date: 20101027
  Serious: Yes (Hospitalization)
  Sender: FDA-Public Use
  Company Number: JP-PFIZER INC-2010066574

PATIENT
  Age: 61 Year
  Sex: Female
  Weight: 67.5 kg

DRUGS (8)
  1. SUNITINIB MALATE [Suspect]
     Indication: RENAL CELL CARCINOMA
     Dosage: 50 MG, 1X/DAY
     Route: 048
     Dates: start: 20070910, end: 20091103
  2. LOXONIN [Concomitant]
     Dosage: UNK
     Route: 048
  3. MILMAG [Concomitant]
     Dosage: UNK
     Route: 048
  4. MUCOSTA [Concomitant]
     Dosage: UNK
     Route: 048
  5. FENTANYL [Concomitant]
     Dosage: UNK
     Route: 062
  6. THYRADIN S [Concomitant]
     Dosage: UNK
     Route: 048
  7. PROCHLORPERAZINE [Concomitant]
     Dosage: UNK
     Route: 048
  8. MYSLEE [Concomitant]
     Dosage: UNK
     Route: 048

REACTIONS (2)
  - BLOOD PRESSURE DECREASED [None]
  - DEPRESSED LEVEL OF CONSCIOUSNESS [None]
